FAERS Safety Report 17395992 (Version 1)
Quarter: 2020Q1

REPORT INFORMATION
  Report Type: Spontaneous
  Country: US (occurrence: US)
  Receive Date: 20200207
  Receipt Date: 20200207
  Transmission Date: 20200409
  Serious: Yes (Death)
  Sender: FDA-Public Use
  Company Number: None

PATIENT
  Sex: Female
  Weight: 56.84 kg

DRUGS (4)
  1. CAPECITABINE. [Suspect]
     Active Substance: CAPECITABINE
     Indication: BREAST CANCER
     Dosage: ?          OTHER FREQUENCY:DAYS 1-7, 15-21;?
     Route: 048
     Dates: start: 20191004, end: 20200207
  2. CALCIUM CARBONATE-VITAMIN D3 [Concomitant]
  3. AZELASTINE. [Concomitant]
     Active Substance: AZELASTINE HYDROCHLORIDE
  4. PERIDEX [Concomitant]
     Active Substance: CHLORHEXIDINE GLUCONATE

REACTIONS (1)
  - Death [None]
